FAERS Safety Report 6229239-X (Version None)
Quarter: 2009Q2

REPORT INFORMATION
  Report Type: 
  Country: None (occurrence: None)
  Receive Date: 20090611
  Receipt Date: 20090611
  Transmission Date: 20091009
  Serious: Yes (Hospitalization)
  Sender: FDA-Public Use
  Company Number: None

PATIENT
  Sex: Female
  Weight: 54.5 kg

DRUGS (5)
  1. CISPLATIN [Suspect]
     Dosage: 53 MG
  2. ALIMTA [Suspect]
     Dosage: 525 MG
  3. COMBIVIR [Concomitant]
  4. LORCET-HD [Concomitant]
  5. MS CONTIN [Concomitant]

REACTIONS (7)
  - ABDOMINAL ABSCESS [None]
  - ABDOMINAL PAIN LOWER [None]
  - BLOOD PRESSURE DECREASED [None]
  - DEHYDRATION [None]
  - NAUSEA [None]
  - STAPHYLOCOCCAL ABSCESS [None]
  - VOMITING [None]
